FAERS Safety Report 9472067 (Version 2)
Quarter: 2013Q4

REPORT INFORMATION
  Report Type: Spontaneous
  Country: US (occurrence: US)
  Receive Date: 20130823
  Receipt Date: 20131007
  Transmission Date: 20140711
  Serious: No
  Sender: FDA-Public Use
  Company Number: US-BIOGENIDEC-2013BI077858

PATIENT
  Age: 25 Year
  Sex: Male

DRUGS (1)
  1. AVONEX [Suspect]
     Indication: MULTIPLE SCLEROSIS
     Route: 030

REACTIONS (10)
  - Suicidal ideation [Unknown]
  - Gait disturbance [Unknown]
  - Fall [Recovered/Resolved]
  - Multiple sclerosis [Unknown]
  - Feeling abnormal [Unknown]
  - Asthenia [Unknown]
  - Depression [Unknown]
  - Insomnia [Unknown]
  - Fatigue [Unknown]
  - Anxiety [Unknown]
